FAERS Safety Report 17955116 (Version 1)
Quarter: 2020Q2

REPORT INFORMATION
  Report Type: Spontaneous
  Country: US (occurrence: US)
  Receive Date: 20200626
  Receipt Date: 20200626
  Transmission Date: 20200714
  Serious: Yes (Death)
  Sender: FDA-Public Use
  Company Number: None

PATIENT
  Age: 66 Year
  Sex: Male
  Weight: 100 kg

DRUGS (3)
  1. TOCILIZUMAB. [Concomitant]
     Active Substance: TOCILIZUMAB
     Dates: start: 20200607, end: 20200607
  2. CONVALESCENT PLASMA [Concomitant]
     Active Substance: HUMAN PLASMA
     Dates: start: 20200606, end: 20200606
  3. REMDESIVIR. [Suspect]
     Active Substance: REMDESIVIR
     Indication: COVID-19
     Route: 042
     Dates: start: 20200606, end: 20200615

REACTIONS (6)
  - Renal impairment [None]
  - Cardiac arrest [None]
  - Blood creatinine increased [None]
  - Condition aggravated [None]
  - Bradycardia [None]
  - Pulseless electrical activity [None]

NARRATIVE: CASE EVENT DATE: 20200623
